FAERS Safety Report 11535892 (Version 1)
Quarter: 2015Q3

REPORT INFORMATION
  Report Type: Spontaneous
  Country: US (occurrence: None)
  Receive Date: 20150921
  Receipt Date: 20150921
  Transmission Date: 20151125
  Serious: No
  Sender: FDA-Public Use
  Company Number: None

PATIENT
  Age: 40 Year
  Sex: Female
  Weight: 122.47 kg

DRUGS (10)
  1. ESTRADIOL. [Concomitant]
     Active Substance: ESTRADIOL
  2. CARVEDILOL. [Concomitant]
     Active Substance: CARVEDILOL
  3. CEPHALEXIN 500 MG [Suspect]
     Active Substance: CEPHALEXIN
     Indication: LYMPHADENITIS
     Route: 048
     Dates: start: 20150915, end: 20150920
  4. HYDRALAZINE [Concomitant]
     Active Substance: HYDRALAZINE HYDROCHLORIDE
  5. ASPIRIN. [Concomitant]
     Active Substance: ASPIRIN
  6. AMLODIPINE BESYLATE. [Concomitant]
     Active Substance: AMLODIPINE BESYLATE
  7. CEPHALEXIN 500 MG [Suspect]
     Active Substance: CEPHALEXIN
     Indication: MULTIPLE ALLERGIES
     Route: 048
     Dates: start: 20150915, end: 20150920
  8. OMEPRAZOLE. [Concomitant]
     Active Substance: OMEPRAZOLE
  9. HCTZ [Concomitant]
     Active Substance: HYDROCHLOROTHIAZIDE
  10. NIASPAN [Concomitant]
     Active Substance: NIACIN

REACTIONS (3)
  - Oropharyngeal pain [None]
  - Inflammation [None]
  - Throat tightness [None]
